FAERS Safety Report 5862473-7 (Version None)
Quarter: 2008Q3

REPORT INFORMATION
  Report Type: 
  Country: None (occurrence: None)
  Receive Date: 20080828
  Receipt Date: 20080819
  Transmission Date: 20090109
  Serious: Yes (Hospitalization)
  Sender: FDA-Public Use
  Company Number: ES-JNJFOC-20080605646

PATIENT
  Age: 25 Year
  Sex: Male

DRUGS (5)
  1. INFLIXIMAB [Suspect]
     Indication: UVEITIS
     Route: 042
  2. PREDNISONE TAB [Concomitant]
     Indication: UVEITIS
  3. CYCLOSPORINE [Concomitant]
     Indication: UVEITIS
  4. METHOTREXATE SODIUM [Concomitant]
     Indication: UVEITIS
  5. DEFLAZACORT [Concomitant]
     Indication: UVEITIS

REACTIONS (1)
  - MYCOBACTERIAL INFECTION [None]
